FAERS Safety Report 19813007 (Version 1)
Quarter: 2021Q3

REPORT INFORMATION
  Report Type: Spontaneous
  Country: US (occurrence: US)
  Receive Date: 20210907
  Receipt Date: 20210907
  Transmission Date: 20211014
  Serious: Yes (Hospitalization)
  Sender: FDA-Public Use
  Company Number: None

PATIENT
  Age: 77 Year
  Sex: Female

DRUGS (1)
  1. TOBRAMYCIN (56AMPS/28DAY) 300MG/5ML LUPIN PHARMACEUTICALS [Suspect]
     Active Substance: TOBRAMYCIN
     Indication: BRONCHIECTASIS
     Dosage: ?DOSING: 1 AMPULE?OTHER ROUTE:NEBULIZED?FREQUENCY: TWICE DAILY FOR 14 DAYS ON, THEN 14 DAYS OFF?
     Route: 055
     Dates: start: 20170713

REACTIONS (1)
  - Myocardial infarction [None]

NARRATIVE: CASE EVENT DATE: 202009
